FAERS Safety Report 14257212 (Version 1)
Quarter: 2017Q4

REPORT INFORMATION
  Report Type: Spontaneous
  Country: CH (occurrence: CH)
  Receive Date: 20171206
  Receipt Date: 20171206
  Transmission Date: 20180321
  Serious: Yes (Death)
  Sender: FDA-Public Use
  Company Number: CH-CIPLA LTD.-2017CH21409

PATIENT

DRUGS (2)
  1. CARBOPLATIN. [Suspect]
     Active Substance: CARBOPLATIN
     Indication: OESOPHAGEAL CARCINOMA
     Dosage: WEEKLY, CYCLICAL
     Route: 065
  2. PACLITAXEL. [Suspect]
     Active Substance: PACLITAXEL
     Indication: OESOPHAGEAL CARCINOMA
     Dosage: WEEKLY, CYCLICAL
     Route: 065

REACTIONS (3)
  - Haemorrhage [Fatal]
  - Circulatory collapse [Fatal]
  - Oesophageal fistula [Fatal]
